FAERS Safety Report 22126483 (Version 1)
Quarter: 2023Q1

REPORT INFORMATION
  Report Type: Spontaneous
  Country: CN (occurrence: CN)
  Receive Date: 20230322
  Receipt Date: 20230322
  Transmission Date: 20230418
  Serious: Yes (Life-Threatening, Other)
  Sender: FDA-Public Use
  Company Number: CN-BAYER-2023A032454

PATIENT
  Age: 74 Year
  Sex: Female
  Weight: 50 kg

DRUGS (5)
  1. GLUCOBAY [Interacting]
     Active Substance: ACARBOSE
     Indication: Type 2 diabetes mellitus
     Dosage: 0.1 G, TID
     Route: 048
     Dates: start: 20211226, end: 20221229
  2. DAPAGLIFLOZIN [Interacting]
     Active Substance: DAPAGLIFLOZIN
     Indication: Type 2 diabetes mellitus
     Dosage: 10 MG, OM
     Route: 048
     Dates: start: 20211226, end: 20221229
  3. GLUCOPHAGE [Interacting]
     Active Substance: METFORMIN HYDROCHLORIDE
     Indication: Type 2 diabetes mellitus
     Dosage: 500 MG, TID
     Route: 048
     Dates: start: 20211226, end: 20221226
  4. GLUCOPHAGE [Interacting]
     Active Substance: METFORMIN HYDROCHLORIDE
     Indication: Type 2 diabetes mellitus
     Dosage: 250 MG, TID
     Route: 048
     Dates: start: 20221227
  5. GLICLAZIDE [Interacting]
     Active Substance: GLICLAZIDE
     Indication: Type 2 diabetes mellitus
     Dosage: 60 MG, OM
     Route: 048
     Dates: start: 20211226, end: 20221226

REACTIONS (6)
  - Hypoglycaemic coma [Recovered/Resolved]
  - Unresponsive to stimuli [Recovered/Resolved]
  - Depressed level of consciousness [Recovered/Resolved]
  - Oropharyngeal pain [Recovered/Resolved]
  - Cough [Recovered/Resolved]
  - Hypophagia [Recovered/Resolved]

NARRATIVE: CASE EVENT DATE: 20221224
